FAERS Safety Report 9030831 (Version 2)
Quarter: 2014Q2

REPORT INFORMATION
  Report Type: Spontaneous
  Country: FR (occurrence: FR)
  Receive Date: 20130123
  Receipt Date: 20140404
  Transmission Date: 20141212
  Serious: Yes (Death, Life-Threatening, Hospitalization)
  Sender: FDA-Public Use
  Company Number: FR-ASTRAZENECA-2013SE04562

PATIENT
  Age: 73 Year
  Sex: Female

DRUGS (4)
  1. CRESTOR [Suspect]
     Route: 048
     Dates: start: 20120903, end: 201210
  2. ZYLORIC [Suspect]
     Dosage: DAILY
     Route: 048
     Dates: start: 20120903, end: 201210
  3. AUGMENTIN [Concomitant]
     Indication: CONJUNCTIVITIS
  4. CEFTRIAXONE [Concomitant]
     Indication: CONJUNCTIVITIS

REACTIONS (4)
  - Toxic epidermal necrolysis [Fatal]
  - Sjogren^s syndrome [Not Recovered/Not Resolved]
  - Tongue atrophy [Not Recovered/Not Resolved]
  - Acute respiratory distress syndrome [Unknown]
